FAERS Safety Report 23591967 (Version 1)
Quarter: 2024Q1

REPORT INFORMATION
  Report Type: Spontaneous
  Country: US (occurrence: US)
  Receive Date: 20240304
  Receipt Date: 20240304
  Transmission Date: 20240410
  Serious: No
  Sender: FDA-Public Use
  Company Number: US-JNJFOC-20240274292

PATIENT
  Age: 4 Decade
  Sex: Male

DRUGS (2)
  1. STELARA [Suspect]
     Active Substance: USTEKINUMAB
     Indication: Colitis ulcerative
     Route: 058
  2. STELARA [Suspect]
     Active Substance: USTEKINUMAB

REACTIONS (7)
  - Expired product administered [Unknown]
  - Product storage error [Unknown]
  - Poor quality product administered [Unknown]
  - Dizziness [Unknown]
  - Paraesthesia [Unknown]
  - Anxiety [Unknown]
  - Off label use [Unknown]
